FAERS Safety Report 24964039 (Version 1)
Quarter: 2025Q1

REPORT INFORMATION
  Report Type: Spontaneous
  Country: CH (occurrence: CH)
  Receive Date: 20250213
  Receipt Date: 20250213
  Transmission Date: 20250409
  Serious: Yes (Hospitalization, Other)
  Sender: BRISTOL-MYERS SQUIBB COMPANY
  Company Number: None

PATIENT
  Age: 71 Year
  Sex: Male
  Weight: 71.2 kg

DRUGS (12)
  1. OPDIVO [Suspect]
     Active Substance: NIVOLUMAB
     Indication: Squamous cell carcinoma
     Route: 040
     Dates: start: 20241202, end: 20241202
  2. ASS CARDIO MEPHA [Concomitant]
     Indication: Product used for unknown indication
     Dosage: 1-0-0-0
     Route: 048
  3. VITAMINS [Concomitant]
     Active Substance: VITAMINS
     Indication: Product used for unknown indication
     Dosage: DAILY
     Route: 048
  4. TRIDERM [BETAMETHASONE DIPROPIONATE;CLOTRIMAZOLE;GENTAMICIN SULFATE] [Concomitant]
     Indication: Product used for unknown indication
     Dosage: 0.5/10/1 MG CREAM 2 X DAILY
     Route: 061
  5. EZETIMIBE\ROSUVASTATIN ZINC [Concomitant]
     Active Substance: EZETIMIBE\ROSUVASTATIN ZINC
     Indication: Product used for unknown indication
     Dosage: 10/20 MG 0-1-0-0
     Route: 048
  6. FOLVITE [Concomitant]
     Active Substance: FOLIC ACID
     Indication: Product used for unknown indication
     Dosage: 1 MG 1X DAILY
     Route: 048
  7. NUTRAPLUS [Concomitant]
     Indication: Product used for unknown indication
     Route: 061
  8. SANADERMIL [Concomitant]
     Indication: Product used for unknown indication
     Dosage: 5 MG/G, 1-0-0-0
     Route: 061
  9. MOCLOBEMIDE [Concomitant]
     Active Substance: MOCLOBEMIDE
     Indication: Product used for unknown indication
     Dosage: 0-1-0-0
     Route: 048
  10. XARELTO [Concomitant]
     Active Substance: RIVAROXABAN
     Indication: Product used for unknown indication
     Dosage: 1-0-1-0
     Route: 048
  11. SYMBICORT [Concomitant]
     Active Substance: BUDESONIDE\FORMOTEROL FUMARATE DIHYDRATE
     Indication: Product used for unknown indication
     Dosage: 200/6 ?G 2 X DAILY
     Route: 055
  12. TIROSINT [Concomitant]
     Active Substance: LEVOTHYROXINE SODIUM
     Indication: Product used for unknown indication
     Dosage: 1-0-0-0
     Route: 048

REACTIONS (4)
  - Pneumonitis [Recovering/Resolving]
  - Hypothyroidism [Recovering/Resolving]
  - Atrial flutter [Recovering/Resolving]
  - Arrhythmia induced cardiomyopathy [Recovering/Resolving]

NARRATIVE: CASE EVENT DATE: 20241201
